FAERS Safety Report 9449336 (Version 2)
Quarter: 2013Q3

REPORT INFORMATION
  Report Type: Spontaneous
  Country: US (occurrence: US)
  Receive Date: 20130808
  Receipt Date: 20130912
  Transmission Date: 20140515
  Serious: Yes (Other)
  Sender: FDA-Public Use
  Company Number: US-RB-050746-13

PATIENT
  Age: 35 Year
  Sex: Female

DRUGS (7)
  1. GENERIC BUPRENORPHINE [Suspect]
     Indication: DRUG DEPENDENCE
     Dosage: DOSING REPORTED AS 1.5 OF BUPRENORPHINE (8 MG TABLET) DAILY
     Route: 060
  2. FLUOXETINE [Suspect]
     Indication: DEPRESSION
     Route: 065
  3. KLONOPIN [Suspect]
     Indication: ANXIETY
     Dosage: TAPERING DOWN TO 0.5 MG IN MAR-2013, AND THEN NONE ON UNKNOWN DATE IN 2013
     Route: 065
     Dates: end: 2013
  4. TYLENOL [Suspect]
     Indication: PAIN
     Dosage: DOSING DETAILS UNKNOWN
     Route: 065
  5. PROZAC [Suspect]
     Indication: ANXIETY
     Route: 065
  6. HYDROXIZINE [Suspect]
     Indication: ANXIETY
     Dosage: DOSING DETAILS UNKNOWN
     Route: 065
  7. NICOTINE [Suspect]
     Indication: PRODUCT USED FOR UNKNOWN INDICATION
     Dosage: UNKNOWN DOSING DETAILS
     Route: 065

REACTIONS (9)
  - Maternal exposure during pregnancy [Recovered/Resolved]
  - Wrong technique in drug usage process [Unknown]
  - Gestational diabetes [Unknown]
  - Gestational hypertension [Unknown]
  - Foetal non-stress test abnormal [Recovered/Resolved]
  - Umbilical cord around neck [Recovered/Resolved]
  - Amniotic cavity infection [Recovered/Resolved]
  - Placental infarction [Recovered/Resolved]
  - Premature delivery [Recovered/Resolved]
